FAERS Safety Report 5981666-1 (Version None)
Quarter: 2008Q4

REPORT INFORMATION
  Report Type: 
  Country: None (occurrence: None)
  Receive Date: 20081205
  Receipt Date: 20081126
  Transmission Date: 20090506
  Serious: Yes (Other)
  Sender: FDA-Public Use
  Company Number: GB-ELI_LILLY_AND_COMPANY-GB200811006139

PATIENT
  Age: 53 Year

DRUGS (1)
  1. CYMBALTA [Suspect]
     Indication: STRESS URINARY INCONTINENCE
     Dosage: 20 MG, DAILY (1/D)
     Route: 048
     Dates: start: 20080814, end: 20080821

REACTIONS (1)
  - DEAFNESS [None]
